FAERS Safety Report 5129871-0 (Version None)
Quarter: 2006Q4

REPORT INFORMATION
  Report Type: 
  Country: None (occurrence: None)
  Receive Date: 20061012
  Receipt Date: 20060926
  Transmission Date: 20070319
  Serious: Yes (Hospitalization)
  Sender: FDA-Public Use
  Company Number: DSA_28764_2006

PATIENT
  Age: 3 Year

DRUGS (1)
  1. LORAZEPAM [Suspect]
     Dosage: 7 MG ONCE PO
     Route: 048
     Dates: start: 20060922, end: 20060922

REACTIONS (2)
  - ACCIDENTAL DRUG INTAKE BY CHILD [None]
  - ACCIDENTAL OVERDOSE [None]
